FAERS Safety Report 20213705 (Version 1)
Quarter: 2021Q4

REPORT INFORMATION
  Report Type: Report from Study
  Country: US (occurrence: None)
  Receive Date: 20211221
  Receipt Date: 20211221
  Transmission Date: 20220304
  Serious: Yes (Other)
  Sender: FDA-Public Use
  Company Number: 2021A872644

PATIENT
  Age: 48 Year
  Sex: Female
  Weight: 108.9 kg

DRUGS (1)
  1. LYNPARZA [Suspect]
     Active Substance: OLAPARIB
     Indication: Ovarian cancer
     Route: 048
     Dates: start: 202001

REACTIONS (2)
  - Drug interaction [Unknown]
  - Diarrhoea [Unknown]
